FAERS Safety Report 13130586 (Version 1)
Quarter: 2017Q1

REPORT INFORMATION
  Report Type: Spontaneous
  Country: JP (occurrence: JP)
  Receive Date: 20170119
  Receipt Date: 20170119
  Transmission Date: 20170428
  Serious: Yes (Other)
  Sender: FDA-Public Use
  Company Number: JP-JNJFOC-20170110773

PATIENT

DRUGS (3)
  1. INFLIXIMAB, RECOMBINANT [Suspect]
     Active Substance: INFLIXIMAB
     Indication: ANKYLOSING SPONDYLITIS
     Dosage: AT WEEKS 2 AND 6, AND SUBSEQUENTLY AT SIX-WEEK INTERVALS UNTIL WEEK 42.
     Route: 042
  2. SULFASALAZINE. [Concomitant]
     Active Substance: SULFASALAZINE
     Route: 065
  3. METHOTREXATE. [Concomitant]
     Active Substance: METHOTREXATE
     Route: 065

REACTIONS (17)
  - Proteinuria [Unknown]
  - Bone atrophy [Unknown]
  - Hepatic function abnormal [Unknown]
  - Drug specific antibody present [Unknown]
  - Tendon rupture [Unknown]
  - Gastroenteritis [Unknown]
  - Angina unstable [Unknown]
  - Tonsillectomy [Unknown]
  - Rash [Unknown]
  - Infusion related reaction [Unknown]
  - Nasopharyngitis [Unknown]
  - Ureterolithiasis [Unknown]
  - Alveolitis allergic [Unknown]
  - Hand fracture [Unknown]
  - Adjustment disorder [Unknown]
  - Infection [Unknown]
  - Antinuclear antibody [Unknown]
